FAERS Safety Report 5399666-1 (Version None)
Quarter: 2007Q3

REPORT INFORMATION
  Report Type: 
  Country: None (occurrence: None)
  Receive Date: 20070727
  Receipt Date: 20070717
  Transmission Date: 20080115
  Serious: Yes (Other)
  Sender: FDA-Public Use
  Company Number: RU-PFIZER INC-2007058452

PATIENT
  Age: 70 Year
  Sex: Female

DRUGS (1)
  1. ZIPRASIDONE (CAPS) [Suspect]
     Indication: HALLUCINATION
     Route: 048
     Dates: start: 20070709, end: 20070713

REACTIONS (2)
  - MUSCULAR WEAKNESS [None]
  - TREMOR [None]
